FAERS Safety Report 4724567-9 (Version None)
Quarter: 2005Q3

REPORT INFORMATION
  Report Type: 
  Country: None (occurrence: None)
  Receive Date: 20050719
  Receipt Date: 20050719
  Transmission Date: 20060218
  Serious: Yes (Other)
  Sender: FDA-Public Use
  Company Number: None

PATIENT
  Sex: Female
  Weight: 73.4827 kg

DRUGS (1)
  1. FENTANYL [Suspect]
     Indication: NEUROMYOPATHY
     Dosage: ONE -TWO PATCHES Q 72 H

REACTIONS (1)
  - UNEVALUABLE EVENT [None]
